APPROVED DRUG PRODUCT: BUSPIRONE HYDROCHLORIDE
Active Ingredient: BUSPIRONE HYDROCHLORIDE
Strength: 7.5MG
Dosage Form/Route: TABLET;ORAL
Application: A076008 | Product #002 | TE Code: AB
Applicant: MYLAN PHARMACEUTICALS INC
Approved: Jul 8, 2013 | RLD: No | RS: No | Type: RX